FAERS Safety Report 7288017-3 (Version None)
Quarter: 2011Q1

REPORT INFORMATION
  Report Type: 
  Country: None (occurrence: None)
  Receive Date: 20110211
  Receipt Date: 20110209
  Transmission Date: 20110831
  Serious: Yes (Other)
  Sender: FDA-Public Use
  Company Number: JP-PFIZER INC-2011024381

PATIENT
  Age: 56 Year
  Sex: Female

DRUGS (6)
  1. SOLON [Concomitant]
     Dosage: UNK
  2. LYRICA [Suspect]
     Indication: SPONDYLOLISTHESIS
     Dosage: 150 MG/DAY
     Route: 048
  3. MEVALOTIN [Concomitant]
     Dosage: UNK
  4. OPALMON [Concomitant]
     Dosage: UNK
  5. STARSIS [Concomitant]
     Dosage: UNK
  6. BASEN [Concomitant]
     Dosage: UNK

REACTIONS (2)
  - ALANINE AMINOTRANSFERASE INCREASED [None]
  - ASPARTATE AMINOTRANSFERASE INCREASED [None]
